FAERS Safety Report 8121580 (Version 2)
Quarter: 2012Q4

REPORT INFORMATION
  Report Type: 
  Country: US (occurrence: US)
  Receive Date: 20110906
  Receipt Date: 20120918
  Transmission Date: 20130627
  Serious: Yes (Hospitalization)
  Sender: FDA-Public Use
  Company Number: US-GLAXOSMITHKLINE-A0815569A

PATIENT
  Age: 67 Year
  Sex: Male
  Weight: 107.7 kg

DRUGS (6)
  1. AVANDIA [Suspect]
     Indication: TYPE 2 DIABETES MELLITUS
     Dosage: 4MG Per day
     Route: 048
     Dates: start: 20010413, end: 20071116
  2. GLUCOPHAGE [Concomitant]
  3. GLYBURIDE [Concomitant]
  4. LISINOPRIL [Concomitant]
  5. GLUCOVANCE [Concomitant]
  6. ZESTRIL [Concomitant]

REACTIONS (9)
  - Acute myocardial infarction [Unknown]
  - Night blindness [Unknown]
  - Cardiac failure congestive [Unknown]
  - Retinal disorder [Unknown]
  - Weight increased [Unknown]
  - Cardiac disorder [Unknown]
  - Macular oedema [Unknown]
  - Diabetic retinopathy [Unknown]
  - Vitreous haemorrhage [Unknown]
